FAERS Safety Report 9490344 (Version 2)
Quarter: 2013Q3

REPORT INFORMATION
  Report Type: Spontaneous
  Country: IL (occurrence: IL)
  Receive Date: 20130830
  Receipt Date: 20130905
  Transmission Date: 20140515
  Serious: Yes (Hospitalization)
  Sender: FDA-Public Use
  Company Number: IL-009507513-1308ISR014041

PATIENT
  Age: 64 Year
  Sex: Male

DRUGS (1)
  1. JANUET [Suspect]
     Indication: DIABETES MELLITUS
     Dosage: UNK, UNKNOWN
     Route: 048
     Dates: start: 201203, end: 2013

REACTIONS (1)
  - Cholangitis [Recovered/Resolved]
